FAERS Safety Report 15599755 (Version 2)
Quarter: 2019Q1

REPORT INFORMATION
  Report Type: Report from Study
  Country: US (occurrence: US)
  Receive Date: 20181108
  Receipt Date: 20190304
  Transmission Date: 20190417
  Serious: No
  Sender: FDA-Public Use
  Company Number: PHEH2018US046499

PATIENT
  Sex: Female

DRUGS (2)
  1. MEKINIST [Suspect]
     Active Substance: TRAMETINIB DIMETHYL SULFOXIDE
     Indication: OVARIAN CANCER
     Route: 065
  2. CORTISONE [Suspect]
     Active Substance: CORTISONE\HYDROCORTISONE
     Indication: PRODUCT USED FOR UNKNOWN INDICATION
     Route: 061

REACTIONS (10)
  - Dehydration [Unknown]
  - Product use in unapproved indication [Unknown]
  - Influenza [Unknown]
  - Pyrexia [Unknown]
  - Dyspnoea [Unknown]
  - Alopecia [Unknown]
  - General physical health deterioration [Unknown]
  - Ejection fraction decreased [Unknown]
  - Drug ineffective [Unknown]
  - Malaise [Unknown]
